FAERS Safety Report 25319951 (Version 5)
Quarter: 2025Q3

REPORT INFORMATION
  Report Type: Report from Study
  Country: CA (occurrence: CA)
  Receive Date: 20250515
  Receipt Date: 20250821
  Transmission Date: 20251020
  Serious: Yes (Other)
  Sender: TAKEDA
  Company Number: CA-TAKEDA-2024TUS117023

PATIENT
  Age: 56 Year
  Sex: Male

DRUGS (13)
  1. VEDOLIZUMAB [Suspect]
     Active Substance: VEDOLIZUMAB
     Indication: Crohn^s disease
  2. VEDOLIZUMAB [Suspect]
     Active Substance: VEDOLIZUMAB
     Dosage: 300 MILLIGRAM, Q4WEEKS
     Dates: start: 20250611
  3. PANTOPRAZOLE SODIUM [Suspect]
     Active Substance: PANTOPRAZOLE SODIUM
     Indication: Product used for unknown indication
  4. TAMSULOSIN [Concomitant]
     Active Substance: TAMSULOSIN
  5. DUTASTERIDE [Concomitant]
     Active Substance: DUTASTERIDE
  6. CHOLESTYRAMINE [Concomitant]
     Active Substance: CHOLESTYRAMINE
  7. REMICADE [Concomitant]
     Active Substance: INFLIXIMAB
  8. METFORMIN [Concomitant]
     Active Substance: METFORMIN HYDROCHLORIDE
  9. CLOPIDOGREL [Concomitant]
     Active Substance: CLOPIDOGREL BISULFATE
  10. ROSUVASTATIN [Concomitant]
     Active Substance: ROSUVASTATIN
  11. BISOPROLOL [Concomitant]
     Active Substance: BISOPROLOL
  12. PERINDOPRIL [Concomitant]
     Active Substance: PERINDOPRIL
  13. AMLODIPINE [Concomitant]
     Active Substance: AMLODIPINE BESYLATE

REACTIONS (7)
  - Haematochezia [Not Recovered/Not Resolved]
  - Crohn^s disease [Not Recovered/Not Resolved]
  - Drug ineffective [Not Recovered/Not Resolved]
  - Gastrointestinal disorder [Recovering/Resolving]
  - Off label use [Unknown]
  - Cholelithiasis [Recovering/Resolving]
  - Infection [Recovering/Resolving]

NARRATIVE: CASE EVENT DATE: 20250611
